FAERS Safety Report 19688538 (Version 1)
Quarter: 2021Q3

REPORT INFORMATION
  Report Type: Spontaneous
  Country: US (occurrence: US)
  Receive Date: 20210811
  Receipt Date: 20210811
  Transmission Date: 20211014
  Serious: No
  Sender: FDA-Public Use
  Company Number: US-SA-2021SA259333

PATIENT
  Age: 63 Year
  Sex: Male

DRUGS (3)
  1. AMMONIUM LACTATE. [Concomitant]
     Active Substance: AMMONIUM LACTATE
  2. DESOXIMETASON [Concomitant]
     Active Substance: DESOXIMETASONE
  3. DUPIXENT [Suspect]
     Active Substance: DUPILUMAB
     Indication: DERMATITIS ATOPIC
     Dosage: 300 MG, QOW
     Route: 058

REACTIONS (3)
  - Rash [Not Recovered/Not Resolved]
  - Dermatitis atopic [Not Recovered/Not Resolved]
  - Sleep disorder [Not Recovered/Not Resolved]

NARRATIVE: CASE EVENT DATE: 202107
